FAERS Safety Report 4917572-0 (Version None)
Quarter: 2006Q1

REPORT INFORMATION
  Report Type: 
  Country: None (occurrence: None)
  Receive Date: 20060221
  Receipt Date: 20060214
  Transmission Date: 20060701
  Serious: Yes (Hospitalization)
  Sender: FDA-Public Use
  Company Number: MY-MERCK-0602MYS00003

PATIENT
  Age: 21 Day
  Sex: Female
  Weight: 1 kg

DRUGS (2)
  1. PRIMAXIN [Suspect]
     Indication: ENTEROBACTER SEPSIS
     Route: 042
     Dates: start: 20060201, end: 20060207
  2. MEROPENEM [Concomitant]
     Indication: ENTEROBACTER SEPSIS
     Route: 065
     Dates: start: 20060208

REACTIONS (1)
  - ENTEROBACTER SEPSIS [None]
